FAERS Safety Report 8596891-3 (Version None)
Quarter: 2012Q3

REPORT INFORMATION
  Report Type: 
  Country: None (occurrence: None)
  Receive Date: 20120815
  Receipt Date: 20120808
  Transmission Date: 20120928
  Serious: Yes (Death)
  Sender: FDA-Public Use
  Company Number: FR-BAXTER-2012BAX014347

PATIENT

DRUGS (3)
  1. CYCLOPHOSPHAMIDE [Suspect]
  2. ALEMTUZUMAB [Suspect]
     Route: 058
  3. FLUDARABINE PHOSPHATE [Suspect]

REACTIONS (1)
  - DIFFUSE LARGE B-CELL LYMPHOMA [None]
